FAERS Safety Report 6610499-8 (Version None)
Quarter: 2010Q1

REPORT INFORMATION
  Report Type: 
  Country: None (occurrence: None)
  Receive Date: 20100302
  Receipt Date: 20100219
  Transmission Date: 20100710
  Serious: Yes (Hospitalization, Other)
  Sender: FDA-Public Use
  Company Number: PHHY2009JP47064

PATIENT
  Sex: Female
  Weight: 54 kg

DRUGS (16)
  1. NEORAL [Suspect]
     Indication: PUSTULAR PSORIASIS
     Dosage: 125 MG DAILY
     Route: 048
     Dates: end: 20090116
  2. NEORAL [Suspect]
     Dosage: 200 MG DAILY
     Route: 048
     Dates: start: 20090117, end: 20090119
  3. NEORAL [Suspect]
     Dosage: 225 MG DAILY
     Route: 048
     Dates: start: 20090120, end: 20090204
  4. NEORAL [Suspect]
     Dosage: 275 MG DAILY
     Route: 048
     Dates: start: 20090205, end: 20090210
  5. NEORAL [Suspect]
     Dosage: 225 MG DAILY
     Route: 048
     Dates: start: 20090211
  6. PREDNISOLONE [Suspect]
     Indication: PUSTULAR PSORIASIS
     Dosage: 30 MG DAILY
     Route: 048
     Dates: start: 20090124, end: 20090128
  7. PREDNISOLONE [Suspect]
     Dosage: 50 MG DAILY
     Route: 048
     Dates: start: 20090129, end: 20090204
  8. PREDNISOLONE [Suspect]
     Dosage: 40 MG DAILY
     Route: 048
     Dates: start: 20090205, end: 20090211
  9. PREDNISOLONE [Suspect]
     Dosage: 35 MG DAILY
     Route: 048
     Dates: start: 20090212
  10. PREDNISOLONE [Suspect]
     Dosage: 10 MG DAILY
     Route: 048
     Dates: start: 20090501, end: 20090909
  11. GASTER D [Concomitant]
     Indication: GASTRITIS
     Dosage: 20 MG, UNK
     Route: 048
     Dates: start: 20090129, end: 20090728
  12. MUCOSTA [Concomitant]
     Indication: PROPHYLAXIS
     Dosage: 300 MG, UNK
     Route: 048
     Dates: start: 20090124
  13. FERROMIA [Concomitant]
     Indication: ANAEMIA
     Dosage: 100 MG, UNK
     Route: 048
     Dates: start: 20081125, end: 20090604
  14. FOLIAMIN [Concomitant]
     Indication: ANAEMIA
     Dosage: UNK
     Route: 048
     Dates: start: 20081125, end: 20090604
  15. METHYCOBAL [Concomitant]
     Indication: NEUROPATHY PERIPHERAL
     Dosage: 1000 UG, UNK
     Route: 048
     Dates: start: 20081125, end: 20090604
  16. AZUNOL                             /00317302/ [Concomitant]
     Dosage: UNK
     Route: 061
     Dates: start: 20090124

REACTIONS (9)
  - DECREASED APPETITE [None]
  - DRUG EXPOSURE DURING PREGNANCY [None]
  - ERYTHEMA [None]
  - HYPERKERATOSIS [None]
  - HYPERTHERMIA [None]
  - MALAISE [None]
  - OEDEMA PERIPHERAL [None]
  - PSORIASIS [None]
  - PYREXIA [None]
